FAERS Safety Report 6667532-7 (Version None)
Quarter: 2010Q2

REPORT INFORMATION
  Report Type: 
  Country: None (occurrence: None)
  Receive Date: 20100405
  Receipt Date: 20100331
  Transmission Date: 20101027
  Serious: Yes (Other)
  Sender: FDA-Public Use
  Company Number: BR-ROCHE-694744

PATIENT
  Sex: Female

DRUGS (6)
  1. CLONAZEPAM [Suspect]
     Indication: SLEEP DISORDER THERAPY
     Dosage: DOSE: 2.5 MG/ML
     Route: 048
     Dates: start: 20000101
  2. CLONAZEPAM [Suspect]
     Route: 048
  3. CLONAZEPAM [Suspect]
     Dosage: DOSE REDUCED
     Route: 048
     Dates: end: 20090701
  4. SOMALGIN [Suspect]
     Indication: ANTICOAGULANT THERAPY
     Route: 065
     Dates: start: 20050101
  5. CITALOR [Concomitant]
     Dates: start: 20050101
  6. LIPITOR [Concomitant]
     Dates: start: 20050101

REACTIONS (10)
  - ARTERIOSCLEROSIS [None]
  - CARDIOVASCULAR DISORDER [None]
  - DRUG INEFFECTIVE [None]
  - GASTRIC DISORDER [None]
  - GASTRIC HAEMORRHAGE [None]
  - HELICOBACTER INFECTION [None]
  - ISCHAEMIC CARDIOMYOPATHY [None]
  - LEFT VENTRICULAR DYSFUNCTION [None]
  - OVERDOSE [None]
  - SENSORY LOSS [None]
